FAERS Safety Report 11579751 (Version 1)
Quarter: 2015Q3

REPORT INFORMATION
  Report Type: Spontaneous
  Country: US (occurrence: US)
  Receive Date: 20150916
  Receipt Date: 20150916
  Transmission Date: 20151125
  Serious: No
  Sender: FDA-Public Use
  Company Number: US-ELI_LILLY_AND_COMPANY-US200805004700

PATIENT
  Sex: Female

DRUGS (2)
  1. FORTEO [Suspect]
     Active Substance: TERIPARATIDE
  2. PREDNISONE. [Concomitant]
     Active Substance: PREDNISONE

REACTIONS (13)
  - Injection site pain [Unknown]
  - Fibromyalgia [Unknown]
  - Chills [Unknown]
  - Arthralgia [Unknown]
  - Injection site erythema [Unknown]
  - Nausea [Unknown]
  - Hot flush [Unknown]
  - Tremor [Unknown]
  - Pain in extremity [Unknown]
  - Pain [Unknown]
  - Injection site urticaria [Unknown]
  - Addison^s disease [Unknown]
  - Dizziness [Unknown]
